FAERS Safety Report 6557394-0 (Version None)
Quarter: 2010Q1

REPORT INFORMATION
  Report Type: 
  Country: None (occurrence: None)
  Receive Date: 20100129
  Receipt Date: 20100126
  Transmission Date: 20100710
  Serious: Yes (Death, Other)
  Sender: FDA-Public Use
  Company Number: PHEH2009US15455

PATIENT
  Sex: Male

DRUGS (2)
  1. GLEEVEC [Suspect]
     Indication: CHRONIC MYELOID LEUKAEMIA
     Dosage: 400 MG, QD
     Route: 048
  2. PLAVIX [Concomitant]
     Dosage: UNK, UNK

REACTIONS (5)
  - DEATH [None]
  - FALL [None]
  - PLEURISY [None]
  - PLEURITIC PAIN [None]
  - PULMONARY THROMBOSIS [None]
